FAERS Safety Report 4540049-1 (Version None)
Quarter: 2004Q4

REPORT INFORMATION
  Report Type: 
  Country: None (occurrence: None)
  Receive Date: 20041223
  Receipt Date: 20041208
  Transmission Date: 20050328
  Serious: Yes (Hospitalization)
  Sender: FDA-Public Use
  Company Number: 186267

PATIENT
  Sex: Female
  Weight: 69.8539 kg

DRUGS (14)
  1. AVONEX [Suspect]
     Indication: MULTIPLE SCLEROSIS
     Dosage: 30 UG; QW; IM
     Route: 030
     Dates: start: 19961101, end: 20030101
  2. AVONEX [Suspect]
     Indication: MULTIPLE SCLEROSIS
     Dosage: 30 UG; QW; IM
     Route: 030
     Dates: start: 20030101
  3. PLAQUENIL [Concomitant]
  4. BACLOFEN [Concomitant]
  5. ZANTAC [Concomitant]
  6. PREMARIN [Concomitant]
  7. PREMARIN CREAM [Concomitant]
  8. AMBIEN [Concomitant]
  9. GLUCOSAMINE [Concomitant]
  10. CHONDROITIN [Concomitant]
  11. PRILOSEC [Concomitant]
  12. LINOLEIC ACID [Concomitant]
  13. ADVAIR DISKUS 100/50 [Concomitant]
  14. ALBUTEROL [Concomitant]

REACTIONS (21)
  - ABDOMINAL MASS [None]
  - ABDOMINAL TENDERNESS [None]
  - ASTHENIA [None]
  - BLOOD TEST ABNORMAL [None]
  - ERYTHEMA [None]
  - FUNGAL CYSTITIS [None]
  - HEPATOSPLENOMEGALY [None]
  - INFLUENZA LIKE ILLNESS [None]
  - IRON DEFICIENCY ANAEMIA [None]
  - LYMPHADENOPATHY [None]
  - LYMPHOMA [None]
  - MICROCYTOSIS [None]
  - MULTIPLE SCLEROSIS [None]
  - OEDEMA PERIPHERAL [None]
  - PANCYTOPENIA [None]
  - PLATELET COUNT INCREASED [None]
  - POST PROCEDURAL COMPLICATION [None]
  - PRURITUS [None]
  - REFUSAL OF TREATMENT BY PATIENT [None]
  - THERAPY NON-RESPONDER [None]
  - URINARY RETENTION [None]
